FAERS Safety Report 7616669-4 (Version None)
Quarter: 2011Q3

REPORT INFORMATION
  Report Type: 
  Country: None (occurrence: None)
  Receive Date: 20110717
  Receipt Date: 20110707
  Transmission Date: 20111222
  Serious: Yes (Other)
  Sender: FDA-Public Use
  Company Number: GB-SANOFI-AVENTIS-2011SA043373

PATIENT
  Age: 43 Year
  Sex: Female
  Weight: 85 kg

DRUGS (5)
  1. INSULIN GLARGINE [Suspect]
     Route: 058
     Dates: start: 20110614, end: 20110616
  2. METFORMIN HCL [Concomitant]
     Route: 048
     Dates: start: 20030101
  3. SIMVASTATIN [Concomitant]
     Route: 048
     Dates: start: 20040101
  4. MEBEVERINE [Concomitant]
  5. OMEPRAZOLE [Concomitant]
     Route: 048

REACTIONS (4)
  - CHEST DISCOMFORT [None]
  - RASH [None]
  - PRURITUS [None]
  - ERYTHEMA [None]
